FAERS Safety Report 10379609 (Version 1)
Quarter: 2014Q3

REPORT INFORMATION
  Report Type: Spontaneous
  Country: FR (occurrence: FR)
  Receive Date: 20140812
  Receipt Date: 20140812
  Transmission Date: 20150326
  Serious: Yes (Other)
  Sender: FDA-Public Use
  Company Number: PHHY2014FR098011

PATIENT
  Age: 57 Year
  Sex: Male

DRUGS (3)
  1. LAROXYL [Concomitant]
     Active Substance: AMITRIPTYLINE
     Dosage: UNK UKN, UNK
  2. TEGRETOL [Suspect]
     Active Substance: CARBAMAZEPINE
     Indication: EPILEPSY
     Dosage: 3 DF (200 MG), DAILY
     Route: 048
     Dates: start: 2005
  3. LYRICA [Concomitant]
     Active Substance: PREGABALIN
     Dosage: UNK UKN, UNK

REACTIONS (3)
  - Hepatic fibrosis [Not Recovered/Not Resolved]
  - General physical health deterioration [Not Recovered/Not Resolved]
  - Drug ineffective [Unknown]
